FAERS Safety Report 5105052-1 (Version None)
Quarter: 2006Q3

REPORT INFORMATION
  Report Type: 
  Country: None (occurrence: None)
  Receive Date: 20060914
  Receipt Date: 20060907
  Transmission Date: 20061208
  Serious: Yes (Hospitalization, Disabling)
  Sender: FDA-Public Use
  Company Number: FI-BOEHRINGER INGELHEIM PHARMACEUTICALS, INC.-2006-SW-00362SF

PATIENT
  Age: 62 Year
  Sex: Male

DRUGS (2)
  1. SIFROL TAB. 0.7 MG [Suspect]
     Indication: PARKINSON'S DISEASE
     Dates: start: 20030420, end: 20060519
  2. SIFROL TAB. 0.7 MG [Suspect]
     Dates: start: 20060520

REACTIONS (8)
  - ABNORMAL BEHAVIOUR [None]
  - AMNESIA [None]
  - DEREALISATION [None]
  - HALLUCINATION [None]
  - OBSESSIVE THOUGHTS [None]
  - OBSESSIVE-COMPULSIVE DISORDER [None]
  - PATHOLOGICAL GAMBLING [None]
  - PERSONALITY DISORDER [None]
